FAERS Safety Report 4652709-2 (Version None)
Quarter: 2005Q2

REPORT INFORMATION
  Report Type: 
  Country: None (occurrence: None)
  Receive Date: 20050502
  Receipt Date: 20050421
  Transmission Date: 20051028
  Serious: Yes (Other)
  Sender: FDA-Public Use
  Company Number: GBWYE608422APR05

PATIENT
  Age: 59 Year
  Sex: Female

DRUGS (6)
  1. PREMIQUE (CONJUGATED ESTROGENS/MEDROXYPROGESTERONE ACETATE, TABLET, UN [Suspect]
     Dosage: ONE MONTH AGO
     Dates: start: 20050301
  2. NIFEDIPINE [Concomitant]
  3. DOXAZOSIN (DOXAZOSIN) [Concomitant]
  4. IBUPROFEN [Concomitant]
  5. ATENOLOL [Concomitant]
  6. ATORVASTATIN (ATORVASTATIN) [Concomitant]

REACTIONS (1)
  - GRANULOMATOUS LIVER DISEASE [None]
